FAERS Safety Report 6511267-8 (Version None)
Quarter: 2009Q4

REPORT INFORMATION
  Report Type: 
  Country: None (occurrence: None)
  Receive Date: 20091222
  Receipt Date: 20090320
  Transmission Date: 20100525
  Serious: No
  Sender: FDA-Public Use
  Company Number: US-ASTRAZENECA-2009UW07199

PATIENT
  Sex: Female
  Weight: 47.6 kg

DRUGS (4)
  1. CRESTOR [Suspect]
     Route: 048
     Dates: start: 20090312
  2. PREDNISONE [Concomitant]
     Indication: POLYMYALGIA RHEUMATICA
  3. TRAMADOL HCL [Concomitant]
     Indication: PAIN
  4. METFORMIN HCL [Concomitant]

REACTIONS (6)
  - ASTHENIA [None]
  - HEADACHE [None]
  - HYPERTENSION [None]
  - MYALGIA [None]
  - NAUSEA [None]
  - PRURITUS [None]
